FAERS Safety Report 16408630 (Version 1)
Quarter: 2019Q2

REPORT INFORMATION
  Report Type: Report from Study
  Country: ES (occurrence: ES)
  Receive Date: 20190610
  Receipt Date: 20190610
  Transmission Date: 20190711
  Serious: Yes (Hospitalization)
  Sender: FDA-Public Use
  Company Number: ES-IGSA-SR10008461

PATIENT
  Age: 56 Year
  Sex: Female

DRUGS (1)
  1. PLANGAMMA [Suspect]
     Active Substance: HUMAN IMMUNOGLOBULIN G
     Indication: HYPOGAMMAGLOBULINAEMIA
     Dosage: 30 G, UNK
     Route: 042
     Dates: start: 20181214, end: 20181214

REACTIONS (3)
  - Hepatitis [Recovered/Resolved]
  - Bone pain [Recovered/Resolved]
  - Hypotension [Recovered/Resolved]

NARRATIVE: CASE EVENT DATE: 20181214
